FAERS Safety Report 21846917 (Version 1)
Quarter: 2023Q1

REPORT INFORMATION
  Report Type: Spontaneous
  Country: US (occurrence: None)
  Receive Date: 20230110
  Receipt Date: 20230110
  Transmission Date: 20230417
  Serious: Yes (Hospitalization)
  Sender: FDA-Public Use
  Company Number: None

PATIENT
  Age: 76 Year
  Sex: Male

DRUGS (3)
  1. RIVAROXABAN [Suspect]
     Active Substance: RIVAROXABAN
     Indication: Atrial fibrillation
     Dosage: FREQUENCY : DAILY;?
     Route: 048
     Dates: start: 20190419, end: 20221226
  2. RIVAROXABAN [Suspect]
     Active Substance: RIVAROXABAN
     Indication: Mitral valve incompetence
  3. ASPIRIN [Suspect]
     Active Substance: ASPIRIN
     Dosage: FREQUENCY : DAILY;?
     Route: 048

REACTIONS (5)
  - Chronic obstructive pulmonary disease [None]
  - Pneumonia [None]
  - Sepsis [None]
  - Anaemia [None]
  - Therapy interrupted [None]

NARRATIVE: CASE EVENT DATE: 20221226
